FAERS Safety Report 5305352-6 (Version None)
Quarter: 2007Q2

REPORT INFORMATION
  Report Type: 
  Country: None (occurrence: None)
  Receive Date: 20070416
  Receipt Date: 20070330
  Transmission Date: 20071010
  Serious: Yes (Hospitalization, Other)
  Sender: FDA-Public Use
  Company Number: PAR_0756_2006

PATIENT
  Age: 21 Year
  Sex: Female

DRUGS (1)
  1. IBUPROFEN [Suspect]
     Dosage: 8 G ONCE

REACTIONS (7)
  - AMNIOTIC FLUID VOLUME DECREASED [None]
  - COAGULATION TIME PROLONGED [None]
  - DRUG EXPOSURE DURING PREGNANCY [None]
  - INDUCED LABOUR [None]
  - OVERDOSE [None]
  - PLATELET AGGREGATION DECREASED [None]
  - PLATELET FUNCTION TEST ABNORMAL [None]
